FAERS Safety Report 4303148-5 (Version None)
Quarter: 2004Q1

REPORT INFORMATION
  Report Type: 
  Country: None (occurrence: None)
  Receive Date: 20040126
  Receipt Date: 20030930
  Transmission Date: 20041129
  Serious: No
  Sender: FDA-Public Use
  Company Number: USA030948624

PATIENT
  Age: 24 Year
  Sex: Male
  Weight: 75 kg

DRUGS (2)
  1. STRATTERA [Suspect]
     Dosage: 40 MG/DAY
     Dates: start: 20030930
  2. ANTIDEPRESSANT [Concomitant]

REACTIONS (2)
  - DYSURIA [None]
  - URINE ANALYSIS ABNORMAL [None]
